FAERS Safety Report 6454086-3 (Version None)
Quarter: 2009Q4

REPORT INFORMATION
  Report Type: 
  Country: None (occurrence: None)
  Receive Date: 20091124
  Receipt Date: 20091116
  Transmission Date: 20100525
  Serious: Yes (Death)
  Sender: FDA-Public Use
  Company Number: B0607152A

PATIENT
  Age: 53 Year

DRUGS (1)
  1. MELPHALAN [Suspect]
     Indication: CHEMOTHERAPY

REACTIONS (3)
  - CARDIAC FAILURE [None]
  - CARDIOVASCULAR INSUFFICIENCY [None]
  - DRUG INEFFECTIVE [None]
